FAERS Safety Report 6499189-2 (Version None)
Quarter: 2009Q4

REPORT INFORMATION
  Report Type: 
  Country: None (occurrence: None)
  Receive Date: 20091127
  Receipt Date: 20081103
  Transmission Date: 20100525
  Serious: Yes (Other)
  Sender: FDA-Public Use
  Company Number: WAES 0805USA00390

PATIENT
  Age: 51 Year
  Sex: Female

DRUGS (2)
  1. FOSAMAX [Suspect]
     Indication: OSTEOPOROSIS
     Dosage: 70 MG/PO; 10 MG/DAILY/PO,DAILY
     Route: 048
     Dates: start: 20020801, end: 20060601
  2. FOSAMAX [Suspect]
     Indication: OSTEOPOROSIS
     Dosage: 70 MG/PO; 10 MG/DAILY/PO,DAILY
     Route: 048
     Dates: end: 20060601

REACTIONS (7)
  - ABSCESS ORAL [None]
  - BONE DISORDER [None]
  - INFLAMMATION [None]
  - JAW DISORDER [None]
  - OSTEONECROSIS [None]
  - SWELLING [None]
  - TEMPOROMANDIBULAR JOINT SYNDROME [None]
